FAERS Safety Report 14923843 (Version 2)
Quarter: 2018Q2

REPORT INFORMATION
  Report Type: Spontaneous
  Country: US (occurrence: US)
  Receive Date: 20180522
  Receipt Date: 20180524
  Transmission Date: 20180711
  Serious: Yes (Other)
  Sender: FDA-Public Use
  Company Number: US-PFIZER INC-2017135677

PATIENT
  Age: 12 Year
  Sex: Female

DRUGS (7)
  1. GENOTROPIN [Suspect]
     Active Substance: SOMATROPIN
     Dosage: 2.4 MG, DAILY
     Route: 058
     Dates: start: 20121003
  2. GENOTROPIN [Suspect]
     Active Substance: SOMATROPIN
     Dosage: 2.2 MG, UNK (INJECTING 2.2 MG)
  3. GENOTROPIN [Suspect]
     Active Substance: SOMATROPIN
     Indication: BLOOD GROWTH HORMONE
     Dosage: 2 MG, DAILY (SEVEN DAYS PER WEEK)
     Route: 058
  4. GENOTROPIN [Suspect]
     Active Substance: SOMATROPIN
     Dosage: 2.2 MG, DAILY
     Dates: start: 20151003
  5. DESMOPRESSIN ACETATE TRIHYDRATE [Concomitant]
     Dosage: 0.1 MG, TWICE DAILY (0.1 MG TABLET, 1 TABLET TWICE DAILY)
  6. LEVOTHYROXINE. [Concomitant]
     Active Substance: LEVOTHYROXINE
     Dosage: 125 UG, DAILY (125 UG TABLET, 1 TABLET DAILY)
  7. GENOTROPIN [Suspect]
     Active Substance: SOMATROPIN
     Dosage: 2.4 MG, DAILY

REACTIONS (12)
  - Device issue [Unknown]
  - Immune system disorder [Unknown]
  - Incorrect dose administered [Unknown]
  - Malaise [Unknown]
  - Visual impairment [Unknown]
  - Headache [Unknown]
  - Poor quality device used [Unknown]
  - Bronchitis [Unknown]
  - Mood swings [Unknown]
  - Fatigue [Unknown]
  - Pneumonia [Unknown]
  - Drug dose omission [Unknown]

NARRATIVE: CASE EVENT DATE: 20180406
